FAERS Safety Report 6729231-2 (Version None)
Quarter: 2010Q2

REPORT INFORMATION
  Report Type: 
  Country: None (occurrence: None)
  Receive Date: 20100517
  Receipt Date: 20100427
  Transmission Date: 20101027
  Serious: No
  Sender: FDA-Public Use
  Company Number: US-ABBOTT-10P-163-0640985-00

PATIENT
  Sex: Male
  Weight: 83.99 kg

DRUGS (1)
  1. SIMCOR [Suspect]
     Indication: DYSLIPIDAEMIA
     Dosage: 500/20MG DAILY
     Route: 048
     Dates: start: 20091001, end: 20100406

REACTIONS (2)
  - ARTHRALGIA [None]
  - MYALGIA [None]
